FAERS Safety Report 9581393 (Version 1)
Quarter: 2013Q4

REPORT INFORMATION
  Report Type: Spontaneous
  Country: US (occurrence: US)
  Receive Date: 20131002
  Receipt Date: 20131002
  Transmission Date: 20140711
  Serious: Yes (Other)
  Sender: FDA-Public Use
  Company Number: US-FRI-1000049275

PATIENT
  Sex: Male

DRUGS (1)
  1. LEXAPRO [Suspect]
     Route: 064

REACTIONS (4)
  - Ectopic kidney [Not Recovered/Not Resolved]
  - Single functional kidney [None]
  - Congenital vesicoureteric reflux [Not Recovered/Not Resolved]
  - Atrial septal defect [Not Recovered/Not Resolved]
